FAERS Safety Report 15531819 (Version 1)
Quarter: 2018Q4

REPORT INFORMATION
  Report Type: Spontaneous
  Country: US (occurrence: US)
  Receive Date: 20181019
  Receipt Date: 20181019
  Transmission Date: 20190205
  Serious: No
  Sender: FDA-Public Use
  Company Number: US-DRREDDYS-USA/USA/18/0097540

PATIENT
  Age: 66 Year
  Sex: Male
  Weight: 127 kg

DRUGS (1)
  1. RANITIDINE. [Suspect]
     Active Substance: RANITIDINE
     Indication: BURNING SENSATION
     Dates: start: 20180322, end: 20180329

REACTIONS (1)
  - Drug ineffective [Unknown]
